FAERS Safety Report 18484121 (Version 2)
Quarter: 2020Q4

REPORT INFORMATION
  Report Type: Spontaneous
  Country: US (occurrence: US)
  Receive Date: 20201110
  Receipt Date: 20201119
  Transmission Date: 20210114
  Serious: No
  Sender: FDA-Public Use
  Company Number: US-BIOGEN-2020BI00935862

PATIENT
  Age: 50 Year
  Sex: Female

DRUGS (7)
  1. DALFAMPRIDINE. [Suspect]
     Active Substance: DALFAMPRIDINE
     Indication: GAIT DISTURBANCE
     Dosage: 10 MILLIGRAM, BID
     Route: 065
     Dates: start: 202008
  2. AMPYRA [Suspect]
     Active Substance: DALFAMPRIDINE
     Route: 065
  3. TECFIDERA [Suspect]
     Active Substance: DIMETHYL FUMARATE
     Dosage: STARTING DOSE
     Route: 048
     Dates: start: 20200506
  4. DALFAMPRIDINE. [Suspect]
     Active Substance: DALFAMPRIDINE
     Route: 065
  5. AMPYRA [Suspect]
     Active Substance: DALFAMPRIDINE
     Indication: GAIT DISTURBANCE
     Dosage: 10 MILLIGRAM, BID
     Route: 048
     Dates: start: 202006
  6. TECFIDERA [Suspect]
     Active Substance: DIMETHYL FUMARATE
     Indication: MULTIPLE SCLEROSIS
     Route: 048
     Dates: start: 202005
  7. TECFIDERA [Suspect]
     Active Substance: DIMETHYL FUMARATE
     Dosage: MAINTENANCE DOSE
     Route: 048

REACTIONS (12)
  - Nausea [Unknown]
  - Musculoskeletal disorder [Not Recovered/Not Resolved]
  - Blood creatinine decreased [Recovered/Resolved]
  - Pain in extremity [Recovered/Resolved]
  - Middle insomnia [Unknown]
  - Headache [Unknown]
  - Abdominal distension [Recovered/Resolved]
  - Visual impairment [Unknown]
  - Condition aggravated [Recovered/Resolved]
  - Abdominal pain upper [Recovered/Resolved]
  - Amnesia [Not Recovered/Not Resolved]
  - Peripheral swelling [Recovered/Resolved]

NARRATIVE: CASE EVENT DATE: 202010
